FAERS Safety Report 8049474-8 (Version None)
Quarter: 2012Q1

REPORT INFORMATION
  Report Type: 
  Country: None (occurrence: None)
  Receive Date: 20120117
  Receipt Date: 20120104
  Transmission Date: 20120608
  Serious: Yes (Other)
  Sender: FDA-Public Use
  Company Number: US-PFIZER INC-2012002719

PATIENT
  Sex: Female
  Weight: 83.9 kg

DRUGS (7)
  1. MELOXICAM [Concomitant]
     Dosage: UNK
  2. SIMVASTATIN [Concomitant]
     Dosage: UNK
  3. PERCOCET [Concomitant]
     Dosage: UNK
  4. LYRICA [Suspect]
     Dosage: 50 MG IN MORNING+100 MG IN EVENING
     Route: 048
  5. ATIVAN [Concomitant]
     Dosage: UNK
  6. LORAZEPAM [Concomitant]
     Dosage: UNK
  7. PANTOPRAZOLE [Concomitant]
     Dosage: UNK

REACTIONS (3)
  - ABASIA [None]
  - FALL [None]
  - SPINAL FRACTURE [None]
